FAERS Safety Report 10244367 (Version 1)
Quarter: 2014Q2

REPORT INFORMATION
  Report Type: Spontaneous
  Country: US (occurrence: US)
  Receive Date: 20140618
  Receipt Date: 20140618
  Transmission Date: 20141212
  Serious: No
  Sender: FDA-Public Use
  Company Number: US-ASTRAZENECA-2014SE40905

PATIENT
  Age: 77 Year
  Sex: Female

DRUGS (10)
  1. SYMBICORT [Suspect]
     Indication: CHRONIC OBSTRUCTIVE PULMONARY DISEASE
     Dosage: 160/4.5 MCG  2 PUFFS BID
     Route: 055
  2. CRESTOR [Suspect]
     Route: 048
  3. ALBUTEROL INHALER [Concomitant]
     Dosage: UNKNOWN UNK
     Route: 055
  4. NEBULIZER FOR PROAIR [Concomitant]
     Dosage: UNKNOWN UNK
     Route: 055
  5. TUDORZA [Concomitant]
     Dosage: UNKNOWN UNK
     Route: 048
  6. SINGULAIR [Concomitant]
     Dosage: UNKNOWN UNK
     Route: 048
  7. GLUCOSAMINE [Concomitant]
     Dosage: UNKNOWN UNK
     Route: 048
  8. VITAMIN B 12 [Concomitant]
     Dosage: UNKNOWN UNK
     Route: 048
  9. ASPIRIN [Concomitant]
     Dosage: UNKNOWN UNK
     Route: 048
  10. TYLENOL [Concomitant]
     Dosage: UNKNOWN UNK
     Route: 048

REACTIONS (2)
  - Dysphonia [Unknown]
  - Dysphonia [Unknown]
